FAERS Safety Report 15568323 (Version 7)
Quarter: 2019Q1

REPORT INFORMATION
  Report Type: Spontaneous
  Country: DE (occurrence: DE)
  Receive Date: 20181031
  Receipt Date: 20190315
  Transmission Date: 20190417
  Serious: Yes (Other)
  Sender: FDA-Public Use
  Company Number: DE-009507513-1810DEU008338

PATIENT
  Age: 69 Year
  Sex: Female

DRUGS (9)
  1. PROPRANOLOL [Concomitant]
     Active Substance: PROPRANOLOL HYDROCHLORIDE
     Indication: HYPERTENSION
     Dosage: 40 MILLIGRAM, BID
     Route: 065
  2. RAMIPRIL. [Concomitant]
     Active Substance: RAMIPRIL
     Indication: HYPERTENSION
     Dosage: AT 6:00 PM
     Route: 065
  3. CARBIDOPA (+) LEVODOPA [Suspect]
     Active Substance: CARBIDOPA\LEVODOPA
     Indication: PARKINSON^S DISEASE
     Dosage: 100/25MG TABLETS 6 TABLETS DAILY (ONE TABLET AT 7:00AM, ONE TABLET AT 10:00AM, ONE TABLET AT 2:0...
     Route: 048
  4. CLONAZEPAM. [Suspect]
     Active Substance: CLONAZEPAM
     Indication: SLEEP DISORDER
     Dosage: 0.5 MILLIGRAM, QD
     Route: 065
  5. LORAZEPAM. [Concomitant]
     Active Substance: LORAZEPAM
     Indication: DEPRESSION
     Dosage: IF REQUIRED, 1/2-2 TABLETS WITHIN 24 H
     Route: 065
  6. CARBIDOPA (+) LEVODOPA [Suspect]
     Active Substance: CARBIDOPA\LEVODOPA
     Dosage: 4 TABLETS, DAILY: 100/25MG: 1 AT 7:00AM; 1 AT 10:00AM, 1 AT 2:00PM, 1 AT 6:00PM
     Route: 048
  7. BUDIPINE [Suspect]
     Active Substance: BUDIPINE
     Indication: PARKINSON^S DISEASE
     Dosage: THREE TIMES A DAY (ONE AT 8:00AM, ONE AT 12:00 NOON AND ONE AT 6:00PM)
     Route: 065
  8. LEVOTHYROXINE SODIUM. [Concomitant]
     Active Substance: LEVOTHYROXINE SODIUM
     Indication: HYPOTHYROIDISM
     Dosage: 1/2 A DAY AT 7:00 AM
     Route: 065
  9. BUDIPINE [Suspect]
     Active Substance: BUDIPINE
     Dosage: 20 MG: 1 AT 8:00AM, 1 AT 12:00 PM, 1 AT 6:00PM

REACTIONS (2)
  - Delirium [Unknown]
  - Psychotic symptom [Unknown]
